FAERS Safety Report 21610231 (Version 1)
Quarter: 2022Q4

REPORT INFORMATION
  Report Type: Spontaneous
  Country: US (occurrence: US)
  Receive Date: 20221117
  Receipt Date: 20221117
  Transmission Date: 20230113
  Serious: No
  Sender: FDA-Public Use
  Company Number: US-BRISTOL-MYERS SQUIBB COMPANY-2022-139072

PATIENT
  Age: 73 Year
  Sex: Male
  Weight: 93.3 kg

DRUGS (1)
  1. REVLIMID [Suspect]
     Active Substance: LENALIDOMIDE
     Indication: Plasma cell myeloma
     Dosage: DAILY FOR 21 DAYS THEN 7
     Route: 048
     Dates: start: 20221003

REACTIONS (4)
  - Feeling abnormal [Unknown]
  - Gait disturbance [Unknown]
  - Memory impairment [Unknown]
  - Fatigue [Unknown]
